FAERS Safety Report 14166087 (Version 1)
Quarter: 2017Q4

REPORT INFORMATION
  Report Type: Spontaneous
  Country: US (occurrence: US)
  Receive Date: 20171107
  Receipt Date: 20171107
  Transmission Date: 20180321
  Serious: Yes (Hospitalization)
  Sender: FDA-Public Use
  Company Number: US-ALLERGAN-1762999US

PATIENT
  Age: 15 Year
  Sex: Male

DRUGS (2)
  1. DICYCLOMINE HCL UNK [Suspect]
     Active Substance: DICYCLOMINE HYDROCHLORIDE
     Indication: VOMITING
  2. DICYCLOMINE HCL UNK [Suspect]
     Active Substance: DICYCLOMINE HYDROCHLORIDE
     Indication: NAUSEA
     Dosage: 20 MG, SINGLE
     Route: 030

REACTIONS (6)
  - Embolia cutis medicamentosa [Recovering/Resolving]
  - Off label use [Unknown]
  - Hypoaesthesia [Recovering/Resolving]
  - Purpura [Recovering/Resolving]
  - Injection site pain [Recovering/Resolving]
  - Paraesthesia [Recovering/Resolving]
